FAERS Safety Report 9783528 (Version 1)
Quarter: 2013Q4

REPORT INFORMATION
  Report Type: Spontaneous
  Country: US (occurrence: US)
  Receive Date: 20131226
  Receipt Date: 20131226
  Transmission Date: 20140711
  Serious: No
  Sender: FDA-Public Use
  Company Number: US-PFIZER INC-2013369362

PATIENT
  Age: 54 Year
  Sex: Female
  Weight: 68.03 kg

DRUGS (1)
  1. PROPANOLOL HCL [Suspect]
     Indication: TREMOR
     Dosage: 10 MG, 2X/DAY

REACTIONS (1)
  - Drug ineffective for unapproved indication [Unknown]
